FAERS Safety Report 9272967 (Version 1)
Quarter: 2013Q2

REPORT INFORMATION
  Report Type: Spontaneous
  Country: US (occurrence: US)
  Receive Date: 20130506
  Receipt Date: 20130506
  Transmission Date: 20140414
  Serious: No
  Sender: FDA-Public Use
  Company Number: US-009507513-1304USA015360

PATIENT
  Age: 83 Year
  Sex: Female

DRUGS (5)
  1. ZIOPTAN [Suspect]
     Indication: INTRAOCULAR PRESSURE TEST
     Dosage: 1 DROP IN EACH EYE/ONCE DAILY
     Route: 047
     Dates: start: 20130422
  2. LORAZEPAM [Concomitant]
  3. DILTIAZEM HYDROCHLORIDE [Concomitant]
  4. COUMADIN [Concomitant]
  5. DEXAMETHASONE [Concomitant]
     Route: 048

REACTIONS (1)
  - Eye discharge [Recovered/Resolved]
